FAERS Safety Report 7882647-3 (Version None)
Quarter: 2011Q4

REPORT INFORMATION
  Report Type: 
  Country: None (occurrence: None)
  Receive Date: 20111101
  Receipt Date: 20110617
  Transmission Date: 20120403
  Serious: No
  Sender: FDA-Public Use
  Company Number: US-AMGEN-USASP2011031360

PATIENT
  Sex: Male

DRUGS (1)
  1. ENBREL [Suspect]
     Indication: PSORIASIS
     Dosage: 50 MG, QWK
     Dates: start: 20080627

REACTIONS (5)
  - LIGAMENT RUPTURE [None]
  - RESPIRATORY TRACT CONGESTION [None]
  - JOINT INJURY [None]
  - SINUSITIS [None]
  - SINUS DISORDER [None]
